FAERS Safety Report 22060214 (Version 5)
Quarter: 2023Q4

REPORT INFORMATION
  Report Type: Spontaneous
  Country: US (occurrence: US)
  Receive Date: 20230303
  Receipt Date: 20231218
  Transmission Date: 20240110
  Serious: No
  Sender: FDA-Public Use
  Company Number: US-PFIZER INC-PV202300036333

PATIENT
  Age: 66 Year
  Sex: Female
  Weight: 87.5 kg

DRUGS (1)
  1. IBRANCE [Suspect]
     Active Substance: PALBOCICLIB
     Indication: Breast cancer metastatic
     Dosage: 125 MG, CYCLIC (DAILY ON DAY 1-21 EVERY 28 DAYS)
     Route: 048

REACTIONS (14)
  - Epistaxis [Unknown]
  - Stomatitis [Not Recovered/Not Resolved]
  - Fatigue [Unknown]
  - Nausea [Unknown]
  - Alopecia [Unknown]
  - Rash [Recovered/Resolved]
  - Eye pruritus [Unknown]
  - Constipation [Unknown]
  - Respiratory tract congestion [Unknown]
  - Oropharyngeal pain [Unknown]
  - Urethral pain [Unknown]
  - Chills [Unknown]
  - Ear pain [Unknown]
  - Infection [Unknown]

NARRATIVE: CASE EVENT DATE: 20231101
